FAERS Safety Report 8339748-5 (Version None)
Quarter: 2012Q2

REPORT INFORMATION
  Report Type: 
  Country: None (occurrence: None)
  Receive Date: 20120507
  Receipt Date: 20120430
  Transmission Date: 20120825
  Serious: Yes (Other)
  Sender: FDA-Public Use
  Company Number: US-BAYER-2012-042770

PATIENT
  Age: 42 Year
  Sex: Female
  Weight: 77.098 kg

DRUGS (4)
  1. OXYCODONE AND ACETAMINOPHEN [Concomitant]
  2. DROSPIRENONE AND ETHINYL ESTRADIOL [Suspect]
  3. PHENTERMINE [Concomitant]
  4. YAZ [Suspect]
     Dosage: UNK

REACTIONS (2)
  - PULMONARY EMBOLISM [None]
  - DEEP VEIN THROMBOSIS [None]
